FAERS Safety Report 9065932 (Version 1)
Quarter: 2013Q1

REPORT INFORMATION
  Report Type: Report from Study
  Country: US (occurrence: US)
  Receive Date: 20130130
  Receipt Date: 20130130
  Transmission Date: 20140127
  Serious: No
  Sender: FDA-Public Use
  Company Number: US-ABBOTT-12P-163-0974997-00

PATIENT
  Age: 62 Year
  Sex: Female

DRUGS (15)
  1. HUMIRA [Suspect]
     Indication: RHEUMATOID ARTHRITIS
     Dates: start: 20120815
  2. JINTELI [Concomitant]
     Indication: HORMONE REPLACEMENT THERAPY
     Dosage: 28 1MG/5MCG DAILY
  3. CYTOMEL [Concomitant]
     Indication: HYPOTHYROIDISM
  4. LEVOTHYROXINE SODIUM [Concomitant]
     Indication: HYPOTHYROIDISM
  5. METOPROLOL SUCCINATE [Concomitant]
     Indication: ATRIAL FIBRILLATION
  6. FLECAINIDE ACETATE [Concomitant]
     Indication: ATRIAL FIBRILLATION
  7. DITROPAN XL [Concomitant]
     Indication: INCONTINENCE
  8. SINGULAIR [Concomitant]
     Indication: HYPERSENSITIVITY
  9. REQUIP [Concomitant]
     Indication: RESTLESS LEGS SYNDROME
  10. PROZAC [Concomitant]
     Indication: DEPRESSION
  11. LEFLUNOMIDE [Concomitant]
     Indication: RHEUMATOID ARTHRITIS
  12. CELEBREX [Concomitant]
     Indication: RHEUMATOID ARTHRITIS
  13. FOLIC ACID [Concomitant]
     Indication: PRODUCT USED FOR UNKNOWN INDICATION
  14. LISINOPRIL [Concomitant]
     Indication: BLOOD PRESSURE
  15. NORVASC [Concomitant]
     Indication: BLOOD PRESSURE

REACTIONS (1)
  - Injection site haemorrhage [Recovered/Resolved]
